FAERS Safety Report 25882557 (Version 1)
Quarter: 2025Q4

REPORT INFORMATION
  Report Type: Spontaneous
  Country: CA (occurrence: CA)
  Receive Date: 20251006
  Receipt Date: 20251006
  Transmission Date: 20260117
  Serious: Yes (Other)
  Sender: CELLTRION
  Company Number: CA-CELLTRION INC.-2025CA035402

PATIENT

DRUGS (1)
  1. INFLIXIMAB [Suspect]
     Active Substance: INFLIXIMAB
     Indication: Colitis ulcerative
     Dosage: MAINTENANCE - 400 MG - IV  (INTRAVENOUS) EVERY 6 WEEKS
     Route: 042

REACTIONS (5)
  - Haematochezia [Unknown]
  - Diverticulitis [Recovered/Resolved]
  - Haemorrhoids [Unknown]
  - Dyschezia [Recovered/Resolved]
  - Intentional product use issue [Unknown]

NARRATIVE: CASE EVENT DATE: 20250101
